FAERS Safety Report 24215140 (Version 1)
Quarter: 2024Q3

REPORT INFORMATION
  Report Type: Spontaneous
  Country: CH (occurrence: CH)
  Receive Date: 20240816
  Receipt Date: 20240816
  Transmission Date: 20241017
  Serious: Yes (Hospitalization)
  Sender: CHEPLAPHARM
  Company Number: None

PATIENT
  Age: 65 Year
  Sex: Male

DRUGS (8)
  1. CAPECITABINE [Suspect]
     Active Substance: CAPECITABINE
     Indication: Adenocarcinoma of colon
     Dosage: BID?DAILY DOSE: 4000 MILLIGRAM
     Dates: start: 20230110, end: 20230123
  2. OXALIPLATIN [Suspect]
     Active Substance: OXALIPLATIN
     Indication: Adenocarcinoma of colon
     Dates: start: 20230110, end: 20230110
  3. CALCIUM\CHOLECALCIFEROL [Concomitant]
     Active Substance: CALCIUM\CHOLECALCIFEROL
  4. LEVETIRACETAM [Concomitant]
     Active Substance: LEVETIRACETAM
  5. QUETIAPINE [Concomitant]
     Active Substance: QUETIAPINE
  6. XARELTO [Concomitant]
     Active Substance: RIVAROXABAN
  7. SERTRALINE [Concomitant]
     Active Substance: SERTRALINE HYDROCHLORIDE
  8. Temesta [Concomitant]

REACTIONS (3)
  - Colitis [Recovering/Resolving]
  - Mechanical ileus [Recovered/Resolved]
  - Large intestinal obstruction [Recovered/Resolved]

NARRATIVE: CASE EVENT DATE: 20230123
